FAERS Safety Report 18124738 (Version 2)
Quarter: 2020Q3

REPORT INFORMATION
  Report Type: Spontaneous
  Country: US (occurrence: US)
  Receive Date: 20200807
  Receipt Date: 20200828
  Transmission Date: 20201103
  Serious: No
  Sender: FDA-Public Use
  Company Number: US-AMGEN-USASP2020124912

PATIENT
  Age: 45 Year
  Sex: Female

DRUGS (1)
  1. REPATHA [Suspect]
     Active Substance: EVOLOCUMAB
     Indication: PRODUCT USED FOR UNKNOWN INDICATION
     Dosage: 140 MILLIGRAM PER MILLILITRE
     Route: 065
     Dates: start: 20200729

REACTIONS (5)
  - Product preparation error [Unknown]
  - Accidental exposure to product [Unknown]
  - Injection site pruritus [Unknown]
  - Injection site bruising [Unknown]
  - Product administration error [Unknown]

NARRATIVE: CASE EVENT DATE: 20200731
